FAERS Safety Report 9094359 (Version 1)
Quarter: 2013Q1

REPORT INFORMATION
  Report Type: Spontaneous
  Country: US (occurrence: None)
  Receive Date: 20130214
  Receipt Date: 20130214
  Transmission Date: 20140127
  Serious: Yes (Life-Threatening, Hospitalization)
  Sender: FDA-Public Use
  Company Number: None

PATIENT
  Age: 24 Year
  Sex: Male

DRUGS (7)
  1. ATRIPLA [Suspect]
     Indication: HIV INFECTION
     Route: 048
     Dates: start: 20111201, end: 20121122
  2. VITAMIN D [Suspect]
     Indication: SUPPLEMENTATION THERAPY
     Route: 048
     Dates: start: 20111201, end: 20121122
  3. CALCIUM CARBONATE [Suspect]
     Indication: SUPPLEMENTATION THERAPY
     Route: 048
     Dates: start: 20111201, end: 20121122
  4. INFLUENZA VACCINE [Concomitant]
  5. ZYRTEC [Concomitant]
  6. SYNALAR [Concomitant]
  7. VITACRAVES [Concomitant]

REACTIONS (4)
  - Hepatic failure [None]
  - Treatment noncompliance [None]
  - Drug-induced liver injury [None]
  - Liver transplant [None]
